FAERS Safety Report 5389500-8 (Version None)
Quarter: 2007Q3

REPORT INFORMATION
  Report Type: 
  Country: None (occurrence: None)
  Receive Date: 20070717
  Receipt Date: 20070705
  Transmission Date: 20080115
  Serious: Yes (Hospitalization)
  Sender: FDA-Public Use
  Company Number: FR-PFIZER INC-2007055735

PATIENT
  Sex: Male

DRUGS (4)
  1. NEURONTIN [Suspect]
     Indication: TRIGEMINAL NEURALGIA
  2. LYRICA [Interacting]
  3. TEGRETOL [Concomitant]
  4. RIVOTRIL [Concomitant]

REACTIONS (4)
  - DRUG INTERACTION [None]
  - HEMIPARESIS [None]
  - LOSS OF CONSCIOUSNESS [None]
  - TRIGEMINAL NEURALGIA [None]
